FAERS Safety Report 7016845-8 (Version None)
Quarter: 2010Q3

REPORT INFORMATION
  Report Type: 
  Country: None (occurrence: None)
  Receive Date: 20100927
  Receipt Date: 20100914
  Transmission Date: 20110219
  Serious: Yes (Hospitalization)
  Sender: FDA-Public Use
  Company Number: MK-WATSON-2010-12443

PATIENT
  Age: 9 Year
  Sex: Female

DRUGS (1)
  1. TRELSTAR [Suspect]
     Indication: PRECOCIOUS PUBERTY
     Dosage: 3.75 MG, MONTHLY
     Route: 030

REACTIONS (1)
  - TYPE 1 DIABETES MELLITUS [None]
